FAERS Safety Report 21029776 (Version 1)
Quarter: 2022Q2

REPORT INFORMATION
  Report Type: Spontaneous
  Country: US (occurrence: None)
  Receive Date: 20220630
  Receipt Date: 20220630
  Transmission Date: 20220721
  Serious: No
  Sender: FDA-Public Use
  Company Number: 2022A204314

PATIENT
  Age: 14960 Day
  Sex: Female
  Weight: 49.9 kg

DRUGS (2)
  1. KOSELUGO [Suspect]
     Active Substance: SELUMETINIB
     Indication: Astrocytoma, low grade
     Dosage: 4 CAPSULES DAILY (10 MG EACH)
     Route: 048
     Dates: start: 20220521
  2. ELEPSIA [Concomitant]
     Indication: Seizure
     Dosage: 1000.0MG UNKNOWN
     Dates: start: 20211101

REACTIONS (2)
  - Dermatitis acneiform [Not Recovered/Not Resolved]
  - Off label use [Unknown]

NARRATIVE: CASE EVENT DATE: 20220526
